FAERS Safety Report 18226492 (Version 1)
Quarter: 2020Q3

REPORT INFORMATION
  Report Type: Report from Study
  Country: US (occurrence: US)
  Receive Date: 20200903
  Receipt Date: 20200903
  Transmission Date: 20201103
  Serious: Yes (Death, Other)
  Sender: FDA-Public Use
  Company Number: US-GILEAD-2020-0492714

PATIENT
  Age: 95 Year
  Sex: Female

DRUGS (1)
  1. IDELALISIB [Suspect]
     Active Substance: IDELALISIB
     Indication: NON-HODGKIN^S LYMPHOMA
     Dosage: 150 (UNITS NOT PROVIDED) BID
     Route: 048
     Dates: start: 20200724, end: 20200827

REACTIONS (1)
  - Death [Fatal]

NARRATIVE: CASE EVENT DATE: 20200827
